FAERS Safety Report 20536828 (Version 1)
Quarter: 2022Q1

REPORT INFORMATION
  Report Type: Spontaneous
  Country: US (occurrence: None)
  Receive Date: 20220302
  Receipt Date: 20220302
  Transmission Date: 20220424
  Serious: No
  Sender: FDA-Public Use
  Company Number: US-ROCHE-2875097

PATIENT
  Sex: Male

DRUGS (4)
  1. NUTROPIN [Suspect]
     Active Substance: SOMATROPIN
     Indication: Growth hormone deficiency
     Dosage: 10MG/2ML
     Route: 058
     Dates: start: 2021, end: 2021
  2. NUTROPIN [Suspect]
     Active Substance: SOMATROPIN
  3. NUTROPIN [Suspect]
     Active Substance: SOMATROPIN
     Dosage: RESUMED NUTROPIN TREATMENT AFTER APPROX. 10 DAYS
     Route: 058
     Dates: start: 2021
  4. NUTROPIN [Suspect]
     Active Substance: SOMATROPIN

REACTIONS (3)
  - COVID-19 [Recovered/Resolved]
  - Asthma [Recovered/Resolved]
  - Drug delivery system malfunction [Unknown]

NARRATIVE: CASE EVENT DATE: 20210101
